FAERS Safety Report 10875892 (Version 1)
Quarter: 2015Q1

REPORT INFORMATION
  Report Type: Spontaneous
  Country: US (occurrence: US)
  Receive Date: 20150227
  Receipt Date: 20150227
  Transmission Date: 20150721
  Serious: No
  Sender: FDA-Public Use
  Company Number: US-AMGEN-USASP2014025217

PATIENT
  Age: 65 Year
  Sex: Female
  Weight: 106.12 kg

DRUGS (25)
  1. SYMBICORT [Concomitant]
     Active Substance: BUDESONIDE\FORMOTEROL FUMARATE DIHYDRATE
     Dosage: 160-4.5, UNK
  2. CENTRUM                            /07499601/ [Concomitant]
     Dosage: UNK
  3. CLINDAMYCIN [Concomitant]
     Active Substance: CLINDAMYCIN\CLINDAMYCIN PHOSPHATE
     Dosage: 150 MG, UNK
  4. CEVIMELINE [Concomitant]
     Active Substance: CEVIMELINE
     Dosage: 30 MG, UNK
  5. METHOTREXATE [Concomitant]
     Active Substance: METHOTREXATE
     Dosage: 2.5 MG, UNK
  6. CITRACAL + D                       /01438101/ [Concomitant]
     Dosage: UNK
  7. FOLIC ACID. [Concomitant]
     Active Substance: FOLIC ACID
     Dosage: UNK
  8. METROGEL [Concomitant]
     Active Substance: METRONIDAZOLE
     Dosage: 0.75 %, UNK
  9. ENBREL [Suspect]
     Active Substance: ETANERCEPT
     Indication: PRODUCT USED FOR UNKNOWN INDICATION
     Dosage: 50 MG, QWK
     Route: 058
  10. HEMORRHOID [Concomitant]
     Dosage: UNK SUP
  11. FLONASE                            /00908302/ [Concomitant]
     Dosage: 0.05 %, UNK SPR
  12. PLAQUENIL [Concomitant]
     Active Substance: HYDROXYCHLOROQUINE SULFATE
     Dosage: 200 MG, UNK
  13. OMEGA 3 6 9                        /01334101/ [Concomitant]
     Dosage: UNK
  14. PROAIR HFA [Concomitant]
     Active Substance: ALBUTEROL SULFATE
     Dosage: UNK
  15. SULFASALAZINE DELAYED-RELEASE [Concomitant]
     Active Substance: SULFASALAZINE
     Dosage: 500 MG, UNK
  16. CRESTOR [Concomitant]
     Active Substance: ROSUVASTATIN CALCIUM
     Dosage: 10 MG, UNK
  17. VITAMIN D                          /00107901/ [Concomitant]
     Active Substance: ERGOCALCIFEROL
     Dosage: 1000 IU, UNK
  18. ASA [Concomitant]
     Active Substance: ASPIRIN
     Dosage: 81 MG, UNK EC
  19. BIOTIN [Concomitant]
     Active Substance: BIOTIN
     Dosage: 1 MG, UNK
  20. VALSARTAN HCTZ [Concomitant]
     Active Substance: HYDROCHLOROTHIAZIDE\VALSARTAN
     Dosage: 160-12.5, UNK
  21. CELEXA [Concomitant]
     Active Substance: CITALOPRAM HYDROBROMIDE
     Dosage: 10 MG, UNK
  22. LYRICA [Concomitant]
     Active Substance: PREGABALIN
     Dosage: 100 MG, UNK
  23. SINGULAIR [Concomitant]
     Active Substance: MONTELUKAST SODIUM
     Dosage: 10 MG, UNK
  24. TRAZODONE [Concomitant]
     Active Substance: TRAZODONE HYDROCHLORIDE
     Dosage: 100 MG, UNK
  25. CELEBREX [Concomitant]
     Active Substance: CELECOXIB
     Dosage: 100 MG, UNK

REACTIONS (4)
  - Tooth infection [Unknown]
  - Arthralgia [Unknown]
  - Joint stiffness [Unknown]
  - Injection site haemorrhage [Unknown]
